FAERS Safety Report 5432047-0 (Version None)
Quarter: 2007Q3

REPORT INFORMATION
  Report Type: 
  Country: None (occurrence: None)
  Receive Date: 20070830
  Receipt Date: 20070810
  Transmission Date: 20080115
  Serious: No
  Sender: FDA-Public Use
  Company Number: US-BOEHRINGER INGELHEIM PHARMACEUTICALS, INC.-2007-BP-17747BP

PATIENT
  Sex: Male
  Weight: 77 kg

DRUGS (1)
  1. FLOMAX [Suspect]
     Indication: BENIGN PROSTATIC HYPERPLASIA
     Route: 048
     Dates: start: 20070612, end: 20070710

REACTIONS (4)
  - DIZZINESS [None]
  - HYPOTENSION [None]
  - PROSTATIC SPECIFIC ANTIGEN INCREASED [None]
  - VISUAL DISTURBANCE [None]
